FAERS Safety Report 7247155-1 (Version None)
Quarter: 2011Q1

REPORT INFORMATION
  Report Type: 
  Country: None (occurrence: None)
  Receive Date: 20110127
  Receipt Date: 20101008
  Transmission Date: 20110831
  Serious: No
  Sender: FDA-Public Use
  Company Number: US-BAUSCH-2010BL005705

PATIENT
  Age: 58 Year
  Sex: Female

DRUGS (8)
  1. ALAWAY [Suspect]
     Route: 047
     Dates: start: 20101007, end: 20101007
  2. ALAWAY [Suspect]
     Indication: EYE PRURITUS
     Route: 047
     Dates: start: 20101006, end: 20101006
  3. ALAWAY [Suspect]
     Indication: LACRIMATION INCREASED
     Route: 047
     Dates: start: 20101006, end: 20101006
  4. ALAWAY [Suspect]
     Indication: DERMATITIS
     Route: 047
     Dates: start: 20101006, end: 20101006
  5. ALAWAY [Suspect]
     Indication: EYELID MARGIN CRUSTING
     Route: 047
     Dates: start: 20101006, end: 20101006
  6. ALAWAY [Suspect]
     Route: 047
     Dates: start: 20101007, end: 20101007
  7. ALAWAY [Suspect]
     Route: 047
     Dates: start: 20101007, end: 20101007
  8. ALAWAY [Suspect]
     Route: 047
     Dates: start: 20101007, end: 20101007

REACTIONS (1)
  - EYE PAIN [None]
